FAERS Safety Report 18512918 (Version 3)
Quarter: 2022Q2

REPORT INFORMATION
  Report Type: Spontaneous
  Country: US (occurrence: US)
  Receive Date: 20201117
  Receipt Date: 20220427
  Transmission Date: 20220721
  Serious: No
  Sender: FDA-Public Use
  Company Number: US-PFIZER INC-2020368496

PATIENT
  Age: 60 Year
  Sex: Female

DRUGS (3)
  1. XELJANZ [Suspect]
     Active Substance: TOFACITINIB CITRATE
     Indication: Rheumatoid arthritis
     Dosage: 5 MG, TWICE DAILY
     Route: 048
     Dates: start: 202007
  2. XELJANZ [Suspect]
     Active Substance: TOFACITINIB CITRATE
     Dosage: 10 MG, TWICE DAILY
     Route: 048
  3. XELJANZ [Suspect]
     Active Substance: TOFACITINIB CITRATE
     Dosage: 5 MG, 2X/DAY
     Route: 048
     Dates: start: 20211130

REACTIONS (5)
  - Headache [Unknown]
  - Off label use [Unknown]
  - Product dose omission in error [Unknown]
  - Product dose omission issue [Unknown]
  - Arthralgia [Unknown]

NARRATIVE: CASE EVENT DATE: 20201112
